FAERS Safety Report 17792179 (Version 1)
Quarter: 2020Q2

REPORT INFORMATION
  Report Type: Spontaneous
  Country: US (occurrence: US)
  Receive Date: 20200515
  Receipt Date: 20200515
  Transmission Date: 20200714
  Serious: No
  Sender: FDA-Public Use
  Company Number: US-TEVA-2020-US-1237869

PATIENT
  Age: 70 Year
  Sex: Female

DRUGS (1)
  1. CLONAZEPAM ACTAVIS [Suspect]
     Active Substance: CLONAZEPAM
     Indication: NEURALGIA
     Route: 065

REACTIONS (2)
  - Adverse event [Unknown]
  - Product substitution issue [Unknown]
